FAERS Safety Report 9402778 (Version 5)
Quarter: 2014Q1

REPORT INFORMATION
  Report Type: Report from Study
  Country: NO (occurrence: NO)
  Receive Date: 20130716
  Receipt Date: 20140315
  Transmission Date: 20141002
  Serious: Yes (Hospitalization)
  Sender: FDA-Public Use
  Company Number: NO-ROCHE-1244805

PATIENT
  Age: 51 Year
  Sex: Female
  Weight: 59 kg

DRUGS (2)
  1. TRASTUZUMAB EMTANSINE [Suspect]
     Indication: BREAST CANCER METASTATIC
     Dosage: DOSE OF LAST TAKEN 206.64 MG, DATE OF MOST RECENT DOSE PRIOR TO AE ONSET 19/JUN/2013
     Route: 042
     Dates: start: 20120516
  2. XGEVA [Concomitant]
     Indication: METASTASES TO BONE
     Route: 065
     Dates: start: 20120118

REACTIONS (1)
  - Hyponatraemia [Recovered/Resolved with Sequelae]
